FAERS Safety Report 15690662 (Version 1)
Quarter: 2018Q4

REPORT INFORMATION
  Report Type: Spontaneous
  Country: FR (occurrence: FR)
  Receive Date: 20181205
  Receipt Date: 20181205
  Transmission Date: 20190205
  Serious: Yes (Hospitalization)
  Sender: FDA-Public Use
  Company Number: FR-TEVA-2018-FR-982055

PATIENT
  Age: 33 Year
  Sex: Male

DRUGS (4)
  1. COMPLEMENT ALIMENTAIRE [Concomitant]
     Active Substance: DIETARY SUPPLEMENT
     Dosage: LACTIBIANE
  2. INEXIUM [Concomitant]
     Active Substance: ESOMEPRAZOLE
  3. DOLIPRANE [Suspect]
     Active Substance: ACETAMINOPHEN
     Indication: MIGRAINE
     Dosage: 1 GRAM DAILY;
     Route: 048
     Dates: start: 20181026, end: 20181026
  4. IBUPROFENE [Suspect]
     Active Substance: IBUPROFEN
     Indication: MIGRAINE
     Dosage: 400 MILLIGRAM DAILY;
     Route: 048
     Dates: start: 20181026, end: 20181026

REACTIONS (5)
  - Tongue oedema [Recovered/Resolved]
  - Dysphagia [Recovered/Resolved]
  - Face oedema [Recovered/Resolved]
  - Oral pruritus [Recovered/Resolved]
  - Dysphonia [Recovered/Resolved]

NARRATIVE: CASE EVENT DATE: 20181026
